FAERS Safety Report 10084287 (Version 1)
Quarter: 2014Q2

REPORT INFORMATION
  Report Type: Spontaneous
  Country: US (occurrence: US)
  Receive Date: 20140417
  Receipt Date: 20140417
  Transmission Date: 20141212
  Serious: No
  Sender: FDA-Public Use
  Company Number: US-BAYER-2014-056340

PATIENT
  Age: 51 Year
  Sex: Female

DRUGS (1)
  1. CLIMARA [Suspect]
     Dosage: UNK UNK, OW
     Route: 062

REACTIONS (2)
  - Product adhesion issue [None]
  - Inappropriate schedule of drug administration [None]
